FAERS Safety Report 25220356 (Version 1)
Quarter: 2025Q2

REPORT INFORMATION
  Report Type: Spontaneous
  Country: US (occurrence: US)
  Receive Date: 20250421
  Receipt Date: 20250421
  Transmission Date: 20250716
  Serious: Yes (Other)
  Sender: TEVA
  Company Number: US-TEVA-VS-3322795

PATIENT

DRUGS (2)
  1. AMPHETAMINE SULFATE\DEXTROAMPHETAMINE [Suspect]
     Active Substance: AMPHETAMINE SULFATE\DEXTROAMPHETAMINE
     Indication: Product used for unknown indication
     Route: 065
     Dates: start: 202504
  2. AMPHETAMINE SULFATE\DEXTROAMPHETAMINE [Suspect]
     Active Substance: AMPHETAMINE SULFATE\DEXTROAMPHETAMINE
     Indication: Product used for unknown indication
     Route: 065
     Dates: start: 202502, end: 2025

REACTIONS (9)
  - Brain fog [Unknown]
  - Loss of personal independence in daily activities [Unknown]
  - Product formulation issue [Unknown]
  - Disturbance in attention [Unknown]
  - Headache [Unknown]
  - Impaired quality of life [Unknown]
  - Product substitution issue [Unknown]
  - Manufacturing issue [Unknown]
  - Fatigue [Unknown]

NARRATIVE: CASE EVENT DATE: 20250101
